FAERS Safety Report 15123089 (Version 1)
Quarter: 2018Q3

REPORT INFORMATION
  Report Type: Spontaneous
  Country: US (occurrence: US)
  Receive Date: 20180613
  Receipt Date: 20180613
  Transmission Date: 20181010
  Serious: Yes (Disabling, Other)
  Sender: FDA-Public Use
  Company Number: None

PATIENT
  Age: 46 Year
  Sex: Female
  Weight: 94.35 kg

DRUGS (13)
  1. METOPROLOL TARTRATE. [Concomitant]
     Active Substance: METOPROLOL TARTRATE
  2. CALCITRIOL. [Concomitant]
     Active Substance: CALCITRIOL
  3. ZIOPTAN [Concomitant]
     Active Substance: TAFLUPROST
  4. ALLOPURINOL. [Concomitant]
     Active Substance: ALLOPURINOL
  5. ABILIFY [Concomitant]
     Active Substance: ARIPIPRAZOLE
  6. PRISTIQ EXTENDED?RELEASE [Concomitant]
     Active Substance: DESVENLAFAXINE SUCCINATE
  7. FLUTICASONE. [Concomitant]
     Active Substance: FLUTICASONE
  8. LOSARTAN. [Concomitant]
     Active Substance: LOSARTAN
  9. LITHIUM. [Suspect]
     Active Substance: LITHIUM
     Indication: BIPOLAR DISORDER
     Dates: start: 199008, end: 199812
  10. MONTELUKAST [Concomitant]
     Active Substance: MONTELUKAST SODIUM
  11. LASIX [Concomitant]
     Active Substance: FUROSEMIDE
  12. DOXAZOSIN [Concomitant]
     Active Substance: DOXAZOSIN\DOXAZOSIN MESYLATE
  13. PRENATAL VITAMINS [Concomitant]
     Active Substance: VITAMINS

REACTIONS (1)
  - Renal failure [None]

NARRATIVE: CASE EVENT DATE: 19981201
